FAERS Safety Report 8126183-8 (Version None)
Quarter: 2012Q1

REPORT INFORMATION
  Report Type: 
  Country: None (occurrence: None)
  Receive Date: 20120209
  Receipt Date: 20120203
  Transmission Date: 20120608
  Serious: Yes (Other)
  Sender: FDA-Public Use
  Company Number: PHEH2012US000547

PATIENT
  Sex: Female

DRUGS (2)
  1. MYFORTIC [Suspect]
     Indication: RENAL TRANSPLANT
     Dosage: 720 MG, BID
     Route: 048
     Dates: start: 20101011
  2. NEORAL [Concomitant]
     Dosage: 75 MG, BID
     Route: 048
     Dates: start: 20101110

REACTIONS (2)
  - FALL [None]
  - ANKLE FRACTURE [None]
